FAERS Safety Report 6743363-4 (Version None)
Quarter: 2010Q2

REPORT INFORMATION
  Report Type: 
  Country: None (occurrence: None)
  Receive Date: 20100527
  Receipt Date: 20100517
  Transmission Date: 20101027
  Serious: Yes (Other)
  Sender: FDA-Public Use
  Company Number: US-BRISTOL-MYERS SQUIBB COMPANY-15118565

PATIENT
  Age: 45 Year
  Sex: Male

DRUGS (8)
  1. ARIPIPRAZOLE [Suspect]
     Indication: SCHIZOPHRENIA
     Route: 030
     Dates: start: 20090818, end: 20090904
  2. ARIPIPRAZOLE [Suspect]
     Route: 048
     Dates: start: 20090818, end: 20090904
  3. METOPROLOL TARTRATE [Concomitant]
     Dates: start: 20050901
  4. TETRACYCLINE [Concomitant]
     Dates: start: 20090228
  5. ATIVAN [Concomitant]
     Dates: start: 20090617
  6. COGENTIN [Concomitant]
     Dates: start: 20090805
  7. LUNESTA [Concomitant]
     Dates: start: 20090805
  8. ALBUTEROL SULFATE [Concomitant]
     Dates: start: 20090718

REACTIONS (1)
  - PSYCHOTIC DISORDER [None]
